FAERS Safety Report 19999957 (Version 2)
Quarter: 2021Q4

REPORT INFORMATION
  Report Type: Report from Study
  Country: FR (occurrence: FR)
  Receive Date: 20211027
  Receipt Date: 20211029
  Transmission Date: 20220303
  Serious: Yes (Death, Hospitalization)
  Sender: FDA-Public Use
  Company Number: FR-ROCHE-2940881

PATIENT
  Age: 73 Year
  Sex: Male

DRUGS (18)
  1. ATEZOLIZUMAB [Suspect]
     Active Substance: ATEZOLIZUMAB
     Indication: Non-small cell lung cancer
     Route: 041
     Dates: start: 20210722, end: 20211015
  2. CARBOPLATIN [Suspect]
     Active Substance: CARBOPLATIN
     Indication: Non-small cell lung cancer
     Dosage: AUC6
     Route: 042
     Dates: start: 20210722, end: 20211015
  3. PACLITAXEL [Suspect]
     Active Substance: PACLITAXEL
     Indication: Non-small cell lung cancer
     Route: 065
     Dates: start: 20210722, end: 20211015
  4. TERBUTALINE [Concomitant]
     Active Substance: TERBUTALINE
  5. IPRATROPIUM [Concomitant]
     Active Substance: IPRATROPIUM
  6. RILMENIDINE [Concomitant]
     Active Substance: RILMENIDINE
  7. AMLODIPINE [Concomitant]
     Active Substance: AMLODIPINE BESYLATE
  8. PERINDOPRIL [Concomitant]
     Active Substance: PERINDOPRIL
  9. FEBUXOSTAT [Concomitant]
     Active Substance: FEBUXOSTAT
  10. CRESTOR [Concomitant]
     Active Substance: ROSUVASTATIN CALCIUM
  11. PANTOPRAZOLE [Concomitant]
     Active Substance: PANTOPRAZOLE
  12. CALCIUM CARBONATE [Concomitant]
     Active Substance: CALCIUM CARBONATE
  13. ACETAMINOPHEN [Concomitant]
     Active Substance: ACETAMINOPHEN
  14. TRAMADOL [Concomitant]
     Active Substance: TRAMADOL
  15. LACTULOSE [Concomitant]
     Active Substance: LACTULOSE
  16. ENOXAPARIN SODIUM [Concomitant]
     Active Substance: ENOXAPARIN SODIUM
  17. ROSUVASTATIN [Concomitant]
     Active Substance: ROSUVASTATIN
  18. CALCIUM [Concomitant]
     Active Substance: CALCIUM

REACTIONS (3)
  - Respiratory failure [Not Recovered/Not Resolved]
  - Pulmonary fibrosis [Not Recovered/Not Resolved]
  - Pneumonitis [Fatal]

NARRATIVE: CASE EVENT DATE: 20211015
